FAERS Safety Report 17229603 (Version 2)
Quarter: 2020Q1

REPORT INFORMATION
  Report Type: Report from Study
  Country: IT (occurrence: IT)
  Receive Date: 20200103
  Receipt Date: 20200106
  Transmission Date: 20200409
  Serious: Yes (Hospitalization)
  Sender: FDA-Public Use
  Company Number: IT-MYLANLABS-2020M1000362

PATIENT
  Age: 32 Year
  Sex: Male

DRUGS (1)
  1. SERTRALINA MYLAN GENERICS 50 MG COMPRESSE RIVESTITE CON FILM [Suspect]
     Active Substance: SERTRALINE HYDROCHLORIDE
     Indication: PRODUCT USED FOR UNKNOWN INDICATION
     Dosage: 1500 MILLIGRAM, TOTAL

REACTIONS (8)
  - Confusional state [Unknown]
  - Intentional product misuse [Unknown]
  - Feeling jittery [Unknown]
  - Hyperhidrosis [Unknown]
  - Substance abuse [Unknown]
  - Mydriasis [Unknown]
  - Toxicity to various agents [Unknown]
  - Agitation [Unknown]

NARRATIVE: CASE EVENT DATE: 20190902
